FAERS Safety Report 6004688-3 (Version None)
Quarter: 2008Q4

REPORT INFORMATION
  Report Type: 
  Country: None (occurrence: None)
  Receive Date: 20081216
  Receipt Date: 20081205
  Transmission Date: 20090506
  Serious: Yes (Death, Life-Threatening, Hospitalization, Other)
  Sender: FDA-Public Use
  Company Number: JP-PFIZER INC-2008078004

PATIENT

DRUGS (3)
  1. CELECOX [Suspect]
     Dosage: 200 MG, 1X/DAY
     Route: 048
     Dates: start: 20080311, end: 20080401
  2. DAI-BOFU-TO [Concomitant]
     Indication: RHEUMATOID ARTHRITIS
     Dosage: 10.5 G, 1X/DAY
     Route: 048
     Dates: start: 20080311, end: 20080331
  3. ISALON [Concomitant]
     Indication: GASTRITIS PROPHYLAXIS
     Dosage: 1 DF, 3X/DAY
     Route: 048
     Dates: start: 20080311, end: 20080331

REACTIONS (1)
  - SYSTEMIC LUPUS ERYTHEMATOSUS [None]
